FAERS Safety Report 8559016-6 (Version None)
Quarter: 2012Q3

REPORT INFORMATION
  Report Type: 
  Country: None (occurrence: None)
  Receive Date: 20120802
  Receipt Date: 20120724
  Transmission Date: 20120928
  Serious: Yes (Hospitalization)
  Sender: FDA-Public Use
  Company Number: AR-BIOGENIDEC-2012BI008549

PATIENT
  Age: 55 Year
  Sex: Male

DRUGS (6)
  1. LIORESAL [Concomitant]
     Indication: MULTIPLE SCLEROSIS
     Route: 048
  2. CLOPIDOGREL [Concomitant]
     Route: 048
  3. CARVEDILOL [Concomitant]
     Route: 048
  4. OMEPRAZOLE [Concomitant]
     Route: 048
  5. AVONEX [Suspect]
     Indication: MULTIPLE SCLEROSIS
     Route: 030
     Dates: start: 20050101
  6. ENALAPRIL MALEATE [Concomitant]
     Route: 048

REACTIONS (1)
  - ACUTE MYOCARDIAL INFARCTION [None]
